FAERS Safety Report 24757119 (Version 1)
Quarter: 2024Q4

REPORT INFORMATION
  Report Type: Spontaneous
  Country: US (occurrence: US)
  Receive Date: 20241220
  Receipt Date: 20241220
  Transmission Date: 20250114
  Serious: No
  Sender: ABBVIE
  Company Number: US-ABBVIE-6043134

PATIENT
  Age: 35 Year
  Sex: Female

DRUGS (1)
  1. VRAYLAR [Suspect]
     Active Substance: CARIPRAZINE
     Indication: Bipolar disorder
     Route: 048

REACTIONS (2)
  - Extrapyramidal disorder [Unknown]
  - Oculogyric crisis [Recovered/Resolved]

NARRATIVE: CASE EVENT DATE: 20241209
